FAERS Safety Report 19060927 (Version 1)
Quarter: 2021Q1

REPORT INFORMATION
  Report Type: Spontaneous
  Country: US (occurrence: US)
  Receive Date: 20210324
  Receipt Date: 20210324
  Transmission Date: 20210420
  Serious: Yes (Death, Other)
  Sender: FDA-Public Use
  Company Number: None

PATIENT
  Age: 31 Year
  Sex: Female
  Weight: 63.45 kg

DRUGS (2)
  1. DICLOXACILLIN SODIUM ORAL CAP 500 MG [Suspect]
     Active Substance: DICLOXACILLIN SODIUM
     Indication: MASTITIS
     Dosage: ?          QUANTITY:40 DF DOSAGE FORM;?
     Route: 048
     Dates: start: 20210310, end: 20210320
  2. PRENATAL VITAMINS [Concomitant]
     Active Substance: VITAMINS

REACTIONS (3)
  - Abortion spontaneous [None]
  - Exposure during pregnancy [None]
  - Exposure via breast milk [None]

NARRATIVE: CASE EVENT DATE: 20210310
